FAERS Safety Report 14384059 (Version 2)
Quarter: 2018Q1

REPORT INFORMATION
  Report Type: Spontaneous
  Country: US (occurrence: US)
  Receive Date: 20180115
  Receipt Date: 20180319
  Transmission Date: 20180509
  Serious: Yes (Hospitalization, Other)
  Sender: FDA-Public Use
  Company Number: US-PFIZER INC-2018014029

PATIENT
  Age: 57 Year
  Sex: Male
  Weight: 87.77 kg

DRUGS (1)
  1. XALKORI [Suspect]
     Active Substance: CRIZOTINIB
     Indication: LUNG NEOPLASM MALIGNANT
     Dosage: 250 MG, 2X/DAY (ONE CAPSULE BY MOUTH )
     Route: 048
     Dates: start: 2014

REACTIONS (3)
  - Neoplasm recurrence [Recovering/Resolving]
  - Dyspnoea [Recovering/Resolving]
  - Lung infection [Recovered/Resolved]

NARRATIVE: CASE EVENT DATE: 20171230
